FAERS Safety Report 5020925-6 (Version None)
Quarter: 2006Q2

REPORT INFORMATION
  Report Type: 
  Country: None (occurrence: None)
  Receive Date: 20060607
  Receipt Date: 20060607
  Transmission Date: 20061013
  Serious: Yes (Other)
  Sender: FDA-Public Use
  Company Number: None

PATIENT
  Age: 51 Year
  Sex: Female
  Weight: 68.0396 kg

DRUGS (1)
  1. LEVAQUIN [Suspect]
     Indication: SINUSITIS
     Dosage: 1      DAY    PO
     Route: 048
     Dates: start: 20050722, end: 20050731

REACTIONS (4)
  - ASTHENIA [None]
  - DRUG INEFFECTIVE [None]
  - FATIGUE [None]
  - TENDONITIS [None]
